FAERS Safety Report 5870000-3 (Version None)
Quarter: 2008Q3

REPORT INFORMATION
  Report Type: 
  Country: None (occurrence: None)
  Receive Date: 20080904
  Receipt Date: 20080610
  Transmission Date: 20090109
  Serious: No
  Sender: FDA-Public Use
  Company Number: US-BAYER-200826199NA

PATIENT
  Age: 34 Year
  Sex: Female
  Weight: 66 kg

DRUGS (3)
  1. MIRENA [Suspect]
     Indication: CONTRACEPTION
     Route: 015
     Dates: start: 20080605, end: 20080601
  2. MIRENA [Suspect]
     Route: 015
     Dates: start: 20080609, end: 20080618
  3. METFORMIN HCL [Concomitant]
     Indication: GESTATIONAL DIABETES
     Route: 048
     Dates: start: 20070601

REACTIONS (4)
  - COMPLICATION OF DEVICE INSERTION [None]
  - INTRA-UTERINE CONTRACEPTIVE DEVICE EXPELLED [None]
  - IUCD COMPLICATION [None]
  - PROCEDURAL PAIN [None]
